FAERS Safety Report 8204418-0 (Version None)
Quarter: 2012Q1

REPORT INFORMATION
  Report Type: 
  Country: None (occurrence: None)
  Receive Date: 20120313
  Receipt Date: 20120313
  Transmission Date: 20120608
  Serious: Yes (Other)
  Sender: FDA-Public Use
  Company Number: None

PATIENT
  Age: 63 Year
  Sex: Female
  Weight: 79.378 kg

DRUGS (3)
  1. EFFEXOR XR [Suspect]
     Indication: FIBROMYALGIA
     Dates: start: 20050401, end: 20111231
  2. EFFEXOR XR [Suspect]
     Indication: DEPRESSION
     Dates: start: 20050401, end: 20111231
  3. VENLAFAXINE HCL EXTENDED-RELEASE [Concomitant]
     Dates: start: 20110101, end: 20120312

REACTIONS (14)
  - CRYING [None]
  - WITHDRAWAL SYNDROME [None]
  - ABDOMINAL PAIN UPPER [None]
  - ADJUSTMENT DISORDER [None]
  - ACTIVITIES OF DAILY LIVING IMPAIRED [None]
  - DISORIENTATION [None]
  - DRUG INEFFECTIVE [None]
  - ARTHRALGIA [None]
  - DIZZINESS [None]
  - HEADACHE [None]
  - PARAESTHESIA [None]
  - DIARRHOEA [None]
  - IMPAIRED DRIVING ABILITY [None]
  - WRONG TECHNIQUE IN DRUG USAGE PROCESS [None]
